FAERS Safety Report 4717696-7 (Version None)
Quarter: 2005Q3

REPORT INFORMATION
  Report Type: 
  Country: None (occurrence: None)
  Receive Date: 20050715
  Receipt Date: 20050705
  Transmission Date: 20060218
  Serious: Yes (Hospitalization)
  Sender: FDA-Public Use
  Company Number: MK200507-0054-1

PATIENT
  Age: 47 Year
  Sex: Female

DRUGS (1)
  1. METHADONE HCL ORAL CONCENTRATE [Suspect]
     Indication: DEPENDENCE
     Dosage: 120MG, DAILY
     Dates: start: 20040115

REACTIONS (4)
  - CONFUSIONAL STATE [None]
  - CONVULSION [None]
  - LOSS OF CONSCIOUSNESS [None]
  - MALAISE [None]
